FAERS Safety Report 7746094-7 (Version None)
Quarter: 2011Q3

REPORT INFORMATION
  Report Type: 
  Country: None (occurrence: None)
  Receive Date: 20110913
  Receipt Date: 20110905
  Transmission Date: 20111222
  Serious: Yes (Other)
  Sender: FDA-Public Use
  Company Number: JP-ASTELLAS-2011JP006389

PATIENT
  Age: 8 Year
  Sex: Male

DRUGS (7)
  1. MELPHALAN HYDROCHLORIDE [Concomitant]
     Dosage: 40 MG/M2, UNKNOWN/D
  2. METHOTREXATE [Concomitant]
     Indication: PROPHYLAXIS AGAINST GRAFT VERSUS HOST DISEASE
     Dosage: 10 MG/M2, UNKNOWN/D
     Route: 065
  3. FLUDARABINE PHOSPHATE [Concomitant]
     Dosage: 25 MG/M2, UNKNOWN/D
     Route: 065
  4. METHOTREXATE [Concomitant]
     Dosage: 7 MG/M2, UNKNOWN/D
     Route: 065
  5. PREDNISOLONE [Concomitant]
     Indication: ACUTE GRAFT VERSUS HOST DISEASE
     Dosage: 1 MG/KG, UNKNOWN/D
     Route: 065
  6. PROGRAF [Suspect]
     Indication: PROPHYLAXIS AGAINST GRAFT VERSUS HOST DISEASE
     Dosage: 0.02 MG/KG, CONTINUOUS
     Route: 041
  7. METHOTREXATE [Concomitant]
     Dosage: 7 MG/M2, UNKNOWN/D
     Route: 065

REACTIONS (4)
  - DRUG INEFFECTIVE [None]
  - POLYNEUROPATHY [None]
  - CHRONIC GRAFT VERSUS HOST DISEASE [None]
  - ACUTE GRAFT VERSUS HOST DISEASE [None]
